FAERS Safety Report 8577122-7 (Version None)
Quarter: 2012Q3

REPORT INFORMATION
  Report Type: 
  Country: None (occurrence: None)
  Receive Date: 20120807
  Receipt Date: 20120731
  Transmission Date: 20120928
  Serious: Yes (Death)
  Sender: FDA-Public Use
  Company Number: JP-CELGENEUS-087-50794-12080589

PATIENT
  Sex: Female
  Weight: 58 kg

DRUGS (9)
  1. CLINDAMYCIN [Concomitant]
     Route: 065
     Dates: start: 20110921, end: 20110930
  2. VIDAZA [Suspect]
     Dosage: 75 MILLIGRAM/SQ. METER
     Route: 041
     Dates: start: 20120402, end: 20120410
  3. MAXIPIME [Concomitant]
     Route: 065
     Dates: start: 20111016
  4. MAXIPIME [Concomitant]
     Route: 065
     Dates: start: 20110901, end: 20110930
  5. CLINDAMYCIN [Concomitant]
     Route: 065
     Dates: start: 20111016
  6. VIDAZA [Suspect]
     Dosage: 75 MILLIGRAM/SQ. METER
     Route: 041
     Dates: start: 20110912, end: 20110920
  7. VIDAZA [Suspect]
     Dosage: 75 MILLIGRAM/SQ. METER
     Route: 041
     Dates: start: 20111010, end: 20111018
  8. VIDAZA [Suspect]
     Dosage: 75 MILLIGRAM/SQ. METER
     Route: 041
     Dates: start: 20111107, end: 20111115
  9. VIDAZA [Suspect]
     Dosage: 75 MILLIGRAM/SQ. METER
     Route: 041
     Dates: start: 20120130, end: 20120207

REACTIONS (2)
  - DISEASE PROGRESSION [None]
  - PNEUMONIA [None]
